FAERS Safety Report 8030811-5 (Version None)
Quarter: 2012Q1

REPORT INFORMATION
  Report Type: 
  Country: None (occurrence: None)
  Receive Date: 20120109
  Receipt Date: 20120103
  Transmission Date: 20120608
  Serious: Yes (Other)
  Sender: FDA-Public Use
  Company Number: JP-PFIZER INC-2012002222

PATIENT
  Age: 25 Year
  Sex: Female

DRUGS (1)
  1. MIGLITOL [Suspect]
     Dosage: 50 MG, 1X/DAY
     Route: 048
     Dates: start: 20111001

REACTIONS (1)
  - HYPOGLYCAEMIA [None]
